FAERS Safety Report 12730668 (Version 2)
Quarter: 2016Q3

REPORT INFORMATION
  Report Type: Report from Study
  Country: ES (occurrence: ES)
  Receive Date: 20160910
  Receipt Date: 20160920
  Transmission Date: 20161109
  Serious: Yes (Hospitalization, Disabling)
  Sender: FDA-Public Use
  Company Number: ES-AMGEN-ESPCT2016119505

PATIENT
  Age: 53 Year
  Sex: Female
  Weight: 64 kg

DRUGS (31)
  1. MOVICOL [Concomitant]
     Active Substance: POLYETHYLENE GLYCOL 3350\POTASSIUM CHLORIDE\SODIUM BICARBONATE\SODIUM CHLORIDE
     Dosage: 13.7 G, UNK
     Route: 048
     Dates: start: 20160527, end: 20160629
  2. DEXAMETASONA [Concomitant]
     Active Substance: DEXAMETHASONE
     Dosage: 4 MG, UNK
     Route: 042
     Dates: start: 20160601, end: 20160603
  3. BACITRACIN W/NEOMYCIN SULFATE/POLYMYXIN B SULPHATE [Concomitant]
     Dosage: 30 MG-30 G, UNK
     Route: 061
     Dates: start: 20160603
  4. GABAPENTINA [Concomitant]
     Active Substance: GABAPENTIN
     Dosage: 300 MG, UNK
     Route: 048
     Dates: start: 20090204
  5. MORPHINE [Concomitant]
     Active Substance: MORPHINE
     Dosage: 5-100 MG, UNK
     Dates: start: 20160527
  6. CLEXANE [Concomitant]
     Active Substance: ENOXAPARIN SODIUM
     Dosage: 40 MG, UNK
     Route: 058
     Dates: start: 20160527, end: 20160831
  7. LANTUS [Concomitant]
     Active Substance: INSULIN GLARGINE
     Dosage: 20-42 UNK, UNK
     Route: 058
     Dates: start: 20160527, end: 20160629
  8. DIAZEPAM. [Concomitant]
     Active Substance: DIAZEPAM
     Dosage: 5 MG, UNK
     Route: 060
     Dates: start: 20090204
  9. LACTULOSA [Concomitant]
     Active Substance: LACTULOSE
     Dosage: 60 G, UNK
     Route: 048
     Dates: start: 20160629
  10. FUROSEMIDA [Concomitant]
     Active Substance: FUROSEMIDE
     Dosage: 10-20 MG, UNK
     Route: 048
     Dates: start: 20160527
  11. FRESUBIN [Concomitant]
     Active Substance: AMINO ACIDS\DEXTROSE\ELECTROLYTES NOS\SOYBEAN OIL\VITAMINS
     Dosage: 200 ML, UNK
     Route: 048
     Dates: start: 20160623, end: 20160629
  12. ACTRAPID [Concomitant]
     Active Substance: INSULIN HUMAN
     Dosage: UNK
     Route: 058
     Dates: start: 20160626, end: 20160629
  13. DULOXETINA [Concomitant]
     Active Substance: DULOXETINE
     Dosage: 60 MG, UNK
     Route: 048
     Dates: start: 20090204
  14. KETAMINE [Concomitant]
     Active Substance: KETAMINE
     Dosage: 5-30 MG, UNK
     Route: 042
     Dates: start: 20160620
  15. OMEPRAZOL [Concomitant]
     Active Substance: OMEPRAZOLE
     Dosage: 20 MG, UNK
     Route: 048
     Dates: start: 20090204
  16. KETOLAR [Concomitant]
     Dosage: 40 MG, UNK
     Route: 048
     Dates: start: 20160629
  17. IRON [Concomitant]
     Active Substance: IRON
     Dosage: 200 MG, UNK
     Route: 042
     Dates: start: 20160628, end: 20160629
  18. DEXKETOPROFEN [Concomitant]
     Active Substance: DEXKETOPROFEN
     Dosage: 50 MG, UNK
     Route: 042
     Dates: start: 20160601, end: 20160621
  19. SEVREDOL [Concomitant]
     Active Substance: MORPHINE
     Dosage: 20-30 MG, UNK
     Route: 048
     Dates: start: 20160627
  20. MIRTAZAPINA [Concomitant]
     Active Substance: MIRTAZAPINE
     Dosage: 15 MG, UNK
     Route: 048
     Dates: start: 20090204
  21. FLUCONAZOL [Concomitant]
     Active Substance: FLUCONAZOLE
     Dosage: 200-400 MG, UNK
     Route: 042
     Dates: start: 20160617, end: 20160703
  22. TALIMOGENE LAHERPAREPVEC [Suspect]
     Active Substance: TALIMOGENE LAHERPAREPVEC
     Indication: MALIGNANT MELANOMA
     Dosage: UNK
     Route: 026
     Dates: start: 20160517, end: 20160817
  23. LEVOFLOXACINO [Concomitant]
     Active Substance: LEVOFLOXACIN
     Dosage: 500 MG, UNK
     Route: 042
     Dates: start: 20160606, end: 20160619
  24. CLOXACILINA [Concomitant]
     Dosage: 1 G, UNK
     Route: 042
     Dates: start: 20160606, end: 20160619
  25. LORAZEPAM. [Concomitant]
     Active Substance: LORAZEPAM
     Dosage: 1 MG, UNK
     Dates: start: 20160608, end: 20160629
  26. ABSTRAL [Concomitant]
     Active Substance: FENTANYL CITRATE
     Dosage: 200 MG, UNK
     Route: 060
     Dates: start: 20160629
  27. PIPERACILLIN AND TAZOBACTAM [Concomitant]
     Active Substance: PIPERACILLIN SODIUM\TAZOBACTAM SODIUM
     Dosage: 4 G, UNK
     Route: 042
     Dates: start: 20160604, end: 20160606
  28. PARACETAMOL [Concomitant]
     Active Substance: ACETAMINOPHEN
     Dosage: 1 G, UNK
     Dates: start: 20160604
  29. METFORMIN [Concomitant]
     Active Substance: METFORMIN HYDROCHLORIDE
     Dosage: 850 MG, UNK
     Route: 048
     Dates: start: 20130101, end: 20160628
  30. CASPOFUNGINA [Concomitant]
     Dosage: 50 MG, UNK
     Route: 042
     Dates: start: 20160617, end: 20160617
  31. ENEMA CASEN [Concomitant]
     Dosage: 250 ML, UNK
     Route: 054
     Dates: start: 20160604, end: 20160604

REACTIONS (1)
  - Pain in extremity [Not Recovered/Not Resolved]

NARRATIVE: CASE EVENT DATE: 20160831
